APPROVED DRUG PRODUCT: PREGABALIN
Active Ingredient: PREGABALIN
Strength: 25MG
Dosage Form/Route: CAPSULE;ORAL
Application: A207799 | Product #007 | TE Code: AB
Applicant: ALKEM LABORATORIES LTD
Approved: Sep 30, 2019 | RLD: No | RS: No | Type: RX